FAERS Safety Report 6819275-4 (Version None)
Quarter: 2010Q3

REPORT INFORMATION
  Report Type: 
  Country: None (occurrence: None)
  Receive Date: 20100707
  Receipt Date: 20100624
  Transmission Date: 20110219
  Serious: Yes (Hospitalization, Other)
  Sender: FDA-Public Use
  Company Number: US-ELI_LILLY_AND_COMPANY-US200911005416

PATIENT
  Sex: Male

DRUGS (22)
  1. FORTEO [Suspect]
     Indication: OSTEOPOROSIS
     Dosage: 20 UG, DAILY (1/D)
     Route: 058
     Dates: start: 20091022
  2. SPIRIVA [Concomitant]
  3. ADVAIR DISKUS 100/50 [Concomitant]
  4. IPRATROPIUM [Concomitant]
  5. NASONEX [Concomitant]
  6. NEXIUM [Concomitant]
  7. AVIDART [Concomitant]
  8. MUCINEX [Concomitant]
  9. PLAVIX [Concomitant]
  10. PREDNISONE TAB [Concomitant]
  11. CALCIUM CARBONATE [Concomitant]
  12. VITAMIN D [Concomitant]
  13. IRON [Concomitant]
  14. TRICOR [Concomitant]
  15. CRESTOR [Concomitant]
  16. CARDIAZEM [Concomitant]
  17. COQ10 [Concomitant]
  18. VITAMIN B-12 [Concomitant]
     Dosage: UNK, MONTHLY (1/M)
  19. STOOL SOFTENER [Concomitant]
  20. LANTUS [Concomitant]
  21. XOPENEX [Concomitant]
  22. COUMADIN [Concomitant]

REACTIONS (12)
  - ASPIRATION [None]
  - ASTHENIA [None]
  - BLOOD GLUCOSE INCREASED [None]
  - BRONCHITIS CHRONIC [None]
  - CARDIAC FAILURE [None]
  - CHRONIC OBSTRUCTIVE PULMONARY DISEASE [None]
  - IMMUNE SYSTEM DISORDER [None]
  - LUNG DISORDER [None]
  - PNEUMONIA [None]
  - RESPIRATORY DISTRESS [None]
  - THROMBOSIS [None]
  - TYPE 1 DIABETES MELLITUS [None]
